FAERS Safety Report 7821112-6 (Version None)
Quarter: 2011Q4

REPORT INFORMATION
  Report Type: 
  Country: None (occurrence: None)
  Receive Date: 20111018
  Receipt Date: 20111012
  Transmission Date: 20120403
  Serious: No
  Sender: FDA-Public Use
  Company Number: US-PFIZER INC-2011245205

PATIENT
  Age: 39 Year
  Sex: Female

DRUGS (4)
  1. EXCEDRIN (MIGRAINE) [Suspect]
  2. EXCEDRIN (MIGRAINE) [Suspect]
     Dosage: UNK
  3. IBUPROFEN (ADVIL) [Suspect]
     Dosage: UNK
  4. TYLENOL-500 [Suspect]
     Dosage: UNK

REACTIONS (1)
  - DRUG INEFFECTIVE [None]
